FAERS Safety Report 7390543-3 (Version None)
Quarter: 2011Q2

REPORT INFORMATION
  Report Type: 
  Country: None (occurrence: None)
  Receive Date: 20110403
  Receipt Date: 20090827
  Transmission Date: 20111010
  Serious: Yes (Hospitalization, Other)
  Sender: FDA-Public Use
  Company Number: PHHY2009DE67208

PATIENT
  Sex: Female

DRUGS (1)
  1. EXTAVIA [Suspect]
     Route: 058
     Dates: start: 20090315

REACTIONS (6)
  - NEPHROLITHIASIS [None]
  - CALCULUS BLADDER [None]
  - INFLUENZA [None]
  - COUGH [None]
  - CYST [None]
  - PAIN [None]
